FAERS Safety Report 15398411 (Version 1)
Quarter: 2018Q3

REPORT INFORMATION
  Report Type: Spontaneous
  Country: CA (occurrence: CA)
  Receive Date: 20180918
  Receipt Date: 20180918
  Transmission Date: 20181010
  Serious: Yes (Hospitalization)
  Sender: FDA-Public Use
  Company Number: CA-ACTELION-A-NJ2018-172009

PATIENT
  Age: 45 Year
  Sex: Female
  Weight: 54.42 kg

DRUGS (17)
  1. CLINDAMYCIN. [Concomitant]
     Active Substance: CLINDAMYCIN
  2. COLACE [Concomitant]
     Active Substance: DOCUSATE SODIUM
  3. ALDACTONE [Concomitant]
     Active Substance: SPIRONOLACTONE
  4. EFFEXOR [Concomitant]
     Active Substance: VENLAFAXINE HYDROCHLORIDE
  5. CARIPUL [Suspect]
     Active Substance: EPOPROSTENOL
     Indication: PULMONARY ARTERIAL HYPERTENSION
     Dosage: UNK
     Route: 042
     Dates: start: 20160606
  6. PALAFER [Concomitant]
     Active Substance: FERROUS FUMARATE
     Dosage: UNK
     Dates: start: 201711
  7. AMITRIPTYLINE [Concomitant]
     Active Substance: AMITRIPTYLINE
  8. SPIRIVA [Concomitant]
     Active Substance: TIOTROPIUM BROMIDE MONOHYDRATE
  9. PERCOCET [Concomitant]
     Active Substance: ACETAMINOPHEN\OXYCODONE HYDROCHLORIDE
  10. LASIX [Concomitant]
     Active Substance: FUROSEMIDE
  11. PANTOPRAZOLE [Concomitant]
     Active Substance: PANTOPRAZOLE
  12. TYLENOL [Concomitant]
     Active Substance: ACETAMINOPHEN
  13. GRAVOL [Concomitant]
     Active Substance: DIMENHYDRINATE
  14. CARIPUL [Suspect]
     Active Substance: EPOPROSTENOL
     Dosage: 3.6 NG/KG, PER MIN
     Route: 042
     Dates: start: 20180504
  15. ELAVIL [Concomitant]
     Active Substance: AMITRIPTYLINE HYDROCHLORIDE
  16. SYMBICORT [Concomitant]
     Active Substance: BUDESONIDE\FORMOTEROL FUMARATE DIHYDRATE
  17. SENOKOT [Concomitant]
     Active Substance: SENNOSIDES

REACTIONS (7)
  - Dyspnoea [Unknown]
  - Pain [Unknown]
  - Nodule [Unknown]
  - International normalised ratio increased [Recovered/Resolved]
  - Sluggishness [Unknown]
  - Constipation [Unknown]
  - Adrenal haemorrhage [Recovered/Resolved]
